FAERS Safety Report 7092615-X (Version None)
Quarter: 2010Q4

REPORT INFORMATION
  Report Type: 
  Country: None (occurrence: None)
  Receive Date: 20101022
  Receipt Date: 20101022
  Transmission Date: 20110411
  Serious: No
  Sender: FDA-Public Use
  Company Number: None

PATIENT

DRUGS (1)
  1. YAZ [Suspect]

REACTIONS (2)
  - ALOPECIA [None]
  - WEIGHT DECREASED [None]
